FAERS Safety Report 16845547 (Version 1)
Quarter: 2019Q3

REPORT INFORMATION
  Report Type: Spontaneous
  Country: US (occurrence: US)
  Receive Date: 20190924
  Receipt Date: 20190924
  Transmission Date: 20191005
  Serious: Yes (Other)
  Sender: FDA-Public Use
  Company Number: US-ROCHE-2410293

PATIENT
  Age: 23 Year
  Sex: Female

DRUGS (9)
  1. AIMOVIG [Suspect]
     Active Substance: ERENUMAB-AOOE
     Route: 030
     Dates: start: 20190824
  2. HYDROXYZINE [Concomitant]
     Active Substance: HYDROXYZINE HYDROCHLORIDE
  3. RIZATRIPTAN. [Concomitant]
     Active Substance: RIZATRIPTAN
     Dosage: 2 DOSES
     Route: 065
  4. ALLEGRA [Concomitant]
     Active Substance: FEXOFENADINE HYDROCHLORIDE
  5. TYLENOL [Concomitant]
     Active Substance: ACETAMINOPHEN
  6. ZYRTEC [Concomitant]
     Active Substance: CETIRIZINE HYDROCHLORIDE
  7. TIZANIDINE. [Concomitant]
     Active Substance: TIZANIDINE
  8. XOLAIR [Suspect]
     Active Substance: OMALIZUMAB
     Indication: URTICARIA
     Route: 065
     Dates: start: 20190824
  9. AIMOVIG [Suspect]
     Active Substance: ERENUMAB-AOOE
     Indication: MIGRAINE PROPHYLAXIS
     Route: 065
     Dates: start: 2019

REACTIONS (2)
  - Loss of consciousness [Recovering/Resolving]
  - Migraine [Not Recovered/Not Resolved]

NARRATIVE: CASE EVENT DATE: 20190824
